APPROVED DRUG PRODUCT: CLOPRA
Active Ingredient: METOCLOPRAMIDE HYDROCHLORIDE
Strength: EQ 10MG BASE
Dosage Form/Route: TABLET;ORAL
Application: A070294 | Product #001
Applicant: QUANTUM PHARMICS LTD
Approved: Jul 29, 1985 | RLD: No | RS: No | Type: DISCN